FAERS Safety Report 8513865-9 (Version None)
Quarter: 2012Q3

REPORT INFORMATION
  Report Type: 
  Country: None (occurrence: None)
  Receive Date: 20120717
  Receipt Date: 20120703
  Transmission Date: 20120928
  Serious: Yes (Other)
  Sender: FDA-Public Use
  Company Number: US-ACCORD-014096

PATIENT
  Age: 60 Year
  Sex: Male

DRUGS (4)
  1. TACROLIMUS [Suspect]
  2. ALEMTUZUMAB [Suspect]
     Dosage: DOSE: 20 ?5 MG
  3. MELPHALAN HYDROCHLORIDE [Suspect]
  4. FLUDARABINE PHOSPHATE [Suspect]
     Dosage: DOSE: 24?5 MG/M2

REACTIONS (4)
  - CONFUSIONAL STATE [None]
  - ECHOLALIA [None]
  - CARDIAC FAILURE CONGESTIVE [None]
  - OFF LABEL USE [None]
